FAERS Safety Report 21755711 (Version 1)
Quarter: 2022Q4

REPORT INFORMATION
  Report Type: Spontaneous
  Country: GB (occurrence: GB)
  Receive Date: 20221220
  Receipt Date: 20221220
  Transmission Date: 20230113
  Serious: Yes (Life-Threatening, Hospitalization, Other)
  Sender: FDA-Public Use
  Company Number: GB-MLMSERVICE-20221201-3952611-1

PATIENT
  Age: 39 Year
  Sex: Female

DRUGS (5)
  1. CLOPIDOGREL [Suspect]
     Active Substance: CLOPIDOGREL BISULFATE
     Indication: Angina unstable
     Dosage: LOADING DOSE
  2. ASPIRIN [Suspect]
     Active Substance: ASPIRIN
     Indication: Angina unstable
     Dosage: LOADING DOSE
     Route: 048
  3. ENOXAPARIN [Suspect]
     Active Substance: ENOXAPARIN
     Indication: Angina unstable
     Route: 058
  4. ATORVASTATIN [Concomitant]
     Active Substance: ATORVASTATIN
     Indication: Angina unstable
     Dosage: LOADING DOSE
  5. NITROGLYCERIN [Concomitant]
     Active Substance: NITROGLYCERIN
     Indication: Angina unstable
     Route: 060

REACTIONS (4)
  - Haemodynamic instability [Recovered/Resolved]
  - Haemoperitoneum [Recovered/Resolved]
  - Splenic rupture [Recovered/Resolved]
  - Subcapsular splenic haematoma [Recovered/Resolved]
